FAERS Safety Report 8874016 (Version 1)
Quarter: 2012Q4

REPORT INFORMATION
  Report Type: Report from Study
  Country: PL (occurrence: PL)
  Receive Date: 20121030
  Receipt Date: 20121030
  Transmission Date: 20130627
  Serious: Yes (Hospitalization)
  Sender: FDA-Public Use
  Company Number: PL-BAXTER-2012BAX021026

PATIENT
  Age: 67 Year
  Sex: Female
  Weight: 76 kg

DRUGS (6)
  1. ENDOXAN [Suspect]
     Indication: CHRONIC LYMPHOID LEUKAEMIA
     Route: 042
     Dates: start: 20111013
  2. RITUXIMAB [Suspect]
     Indication: CHRONIC LYMPHOID LEUKAEMIA
     Route: 042
     Dates: start: 20111013
  3. VINCRISTINE [Suspect]
     Indication: CHRONIC LYMPHOID LEUKAEMIA
     Route: 042
     Dates: start: 20111013
  4. GASEC [Concomitant]
     Indication: DRUG USE FOR UNKNOWN INDICATION
     Route: 048
     Dates: start: 20111013
  5. CLEXANE [Concomitant]
     Indication: DRUG USE FOR UNKNOWN INDICATION
     Route: 058
     Dates: start: 20111124
  6. ENCORTON [Concomitant]
     Indication: DRUG USE FOR UNKNOWN INDICATION
     Route: 048
     Dates: start: 20111013

REACTIONS (1)
  - Pneumonia [Recovered/Resolved]
